FAERS Safety Report 4859822-5 (Version None)
Quarter: 2005Q4

REPORT INFORMATION
  Report Type: 
  Country: None (occurrence: None)
  Receive Date: 20051219
  Receipt Date: 20051208
  Transmission Date: 20060501
  Serious: Yes (Hospitalization, Other)
  Sender: FDA-Public Use
  Company Number: US-GLAXOSMITHKLINE-B0403143A

PATIENT
  Age: 13 Year
  Sex: Female
  Weight: 29 kg

DRUGS (2)
  1. TICARCILLIN + CLAVULANATE [Suspect]
     Indication: PULMONARY FUNCTION TEST DECREASED
     Route: 065
  2. PIPERACILLIN [Suspect]
     Indication: PULMONARY FUNCTION TEST DECREASED
     Route: 065

REACTIONS (12)
  - ALANINE AMINOTRANSFERASE INCREASED [None]
  - ASPARTATE AMINOTRANSFERASE INCREASED [None]
  - BLOOD CREATININE INCREASED [None]
  - EOSINOPHILIA [None]
  - HAEMODIALYSIS [None]
  - HYPERTENSION [None]
  - LYMPHADENOPATHY [None]
  - NEPHRITIS INTERSTITIAL [None]
  - OEDEMA [None]
  - PYREXIA [None]
  - RASH [None]
  - RENAL FAILURE ACUTE [None]
